FAERS Safety Report 4387750-0 (Version None)
Quarter: 2004Q2

REPORT INFORMATION
  Report Type: 
  Country: None (occurrence: None)
  Receive Date: 20040625
  Receipt Date: 20040610
  Transmission Date: 20050107
  Serious: Yes (Hospitalization)
  Sender: FDA-Public Use
  Company Number: 2004AP03120

PATIENT
  Age: 55 Year
  Sex: Male

DRUGS (10)
  1. TENORMIN [Suspect]
     Indication: HYPERTENSION
     Dosage: 100 MG DAILY
     Dates: start: 19980101
  2. SOMAC [Suspect]
     Dosage: 20 MG DAILY PO
     Route: 048
     Dates: start: 20000701, end: 20030725
  3. ESBERIVEN [Suspect]
     Dates: start: 20000701, end: 20030725
  4. TAHOR [Suspect]
     Indication: HYPERCHOLESTEROLAEMIA
     Dosage: 40 MG DAILY PO
     Route: 048
     Dates: start: 20000701, end: 20030725
  5. IDARAC [Suspect]
     Dates: start: 20030415, end: 20030725
  6. GLUCOR [Suspect]
     Indication: DIABETES MELLITUS
     Dates: start: 20030401
  7. AMLOR [Suspect]
     Indication: HYPERTENSION
     Dosage: 10 MG DAILY PO
     Route: 048
     Dates: start: 19980101
  8. HYPERIUM [Suspect]
     Indication: HYPERTENSION
     Dosage: 2 MG DAILY
     Dates: start: 19980101
  9. KARDEGIC / FRA/ [Suspect]
     Dosage: 180 MG DAILY
     Dates: start: 20030401
  10. DI-ANTALVIC [Suspect]
     Dates: start: 20030415, end: 20030725

REACTIONS (3)
  - CUTANEOUS VASCULITIS [None]
  - SKIN NECROSIS [None]
  - VASCULAR PURPURA [None]
